FAERS Safety Report 8289760-X (Version None)
Quarter: 2012Q2

REPORT INFORMATION
  Report Type: 
  Country: None (occurrence: None)
  Receive Date: 20120417
  Receipt Date: 20120410
  Transmission Date: 20120825
  Serious: No
  Sender: FDA-Public Use
  Company Number: US-PFIZER INC-2012055474

PATIENT
  Sex: Female
  Weight: 53.515 kg

DRUGS (14)
  1. BETOPTIC S [Concomitant]
     Dosage: 0.25 %, AS DIRECTED
  2. CINNAMON [Concomitant]
     Dosage: 500 MG, 4 CAPSULES DAILY
     Route: 048
  3. CHANTIX [Suspect]
     Indication: SMOKING CESSATION THERAPY
     Dosage: 0.5 MG, 1X/DAY
     Route: 048
     Dates: start: 20120101, end: 20120101
  4. CHANTIX [Suspect]
     Dosage: 1 MG, 2X/DAY
     Route: 048
     Dates: start: 20120101
  5. CALCIUM 600 + D3 [Concomitant]
     Dosage: 600-125 MG-UNIT, 2X/DAY
     Route: 048
  6. ZETIA [Concomitant]
     Dosage: 10 MG, 1X/DAY
     Route: 048
  7. MULTI-VITAMINS [Concomitant]
     Dosage: UNK, 1X/DAY
     Route: 048
  8. ACTONEL [Concomitant]
     Dosage: 35 MG, WEEKLY
     Route: 048
  9. ASCORBIC ACID/CALCIUM CARBONATE [Concomitant]
     Dosage: 500 MG, 1X/DAY
     Route: 048
  10. VITAMIN E [Concomitant]
     Dosage: UNK, 1X/DAY
     Route: 048
  11. PROCARDIA XL [Concomitant]
     Indication: CARDIOVASCULAR DISORDER
     Dosage: 30 MG, 1X/DAY
  12. PRAVACHOL [Concomitant]
     Indication: CARDIOVASCULAR DISORDER
     Dosage: 80 MG, 1X/DAY
  13. ACETYLSALICYLIC ACID [Concomitant]
     Dosage: 81 MG, 1X/DAY
     Route: 048
  14. PLETAL [Concomitant]
     Dosage: 100 MG, 2X/DAY
     Route: 048

REACTIONS (3)
  - RENAL DISORDER [None]
  - ABNORMAL DREAMS [None]
  - DRUG TOLERANCE [None]
